FAERS Safety Report 15509658 (Version 1)
Quarter: 2018Q4

REPORT INFORMATION
  Report Type: Spontaneous
  Country: CH (occurrence: CH)
  Receive Date: 20181016
  Receipt Date: 20181016
  Transmission Date: 20190205
  Serious: Yes (Life-Threatening, Other)
  Sender: FDA-Public Use
  Company Number: CH-GLAXOSMITHKLINE-CH2018183923

PATIENT
  Age: 16 Year
  Sex: Male

DRUGS (6)
  1. METAMIZOLE [Suspect]
     Active Substance: METAMIZOLE
     Indication: ASTHMA
     Dosage: 4 DF, QD (AS NEEDED)
     Route: 048
     Dates: start: 20180523, end: 20180617
  2. DICLOFENAC [Suspect]
     Active Substance: DICLOFENAC
     Indication: PRODUCT USED FOR UNKNOWN INDICATION
     Dosage: 2 DF, QD (FOR 7 DAYS THEN AS NEEDED)
     Route: 065
  3. METAMIZOLE [Suspect]
     Active Substance: METAMIZOLE
     Indication: ANALGESIC THERAPY
  4. TARDYFERON (FERROUS SULPHATE) [Concomitant]
     Indication: PRODUCT USED FOR UNKNOWN INDICATION
     Dosage: 1 DF, QD
     Route: 065
  5. PARACETAMOL [Concomitant]
     Active Substance: ACETAMINOPHEN
     Indication: PRODUCT USED FOR UNKNOWN INDICATION
     Dosage: MAX 4 PER DAY.
     Route: 065
     Dates: start: 20180617
  6. VITAMIN C [Concomitant]
     Active Substance: ASCORBIC ACID
     Indication: PRODUCT USED FOR UNKNOWN INDICATION
     Dosage: 1 DF, QD
     Route: 065
     Dates: start: 20180516

REACTIONS (1)
  - Agranulocytosis [Unknown]
